FAERS Safety Report 9290448 (Version 1)
Quarter: 2013Q2

REPORT INFORMATION
  Report Type: Spontaneous
  Country: GB (occurrence: GB)
  Receive Date: 20130515
  Receipt Date: 20130515
  Transmission Date: 20140414
  Serious: Yes (Other)
  Sender: FDA-Public Use
  Company Number: GB-ROCHE-1224336

PATIENT
  Age: 40 Year
  Sex: Female
  Weight: 99 kg

DRUGS (8)
  1. PEG-INTERFERON ALFA 2A [Suspect]
     Indication: HEPATITIS C
     Route: 065
  2. VICTRELIS [Suspect]
     Indication: HEPATITIS C
     Route: 048
     Dates: start: 20121227, end: 20130219
  3. TRIBAVIRIN [Suspect]
     Indication: HEPATITIS C
     Route: 065
  4. AMITRIPTYLINE [Concomitant]
  5. BUTRANS [Concomitant]
  6. MIRTAZAPINE [Concomitant]
  7. OMEPRAZOLE [Concomitant]
  8. METFORMIN [Concomitant]
     Route: 065

REACTIONS (4)
  - Feeling abnormal [Unknown]
  - Depressed mood [Unknown]
  - Suicidal ideation [Recovering/Resolving]
  - Self-injurious ideation [Unknown]
